FAERS Safety Report 18112511 (Version 1)
Quarter: 2020Q3

REPORT INFORMATION
  Report Type: Spontaneous
  Country: US (occurrence: US)
  Receive Date: 20200805
  Receipt Date: 20200805
  Transmission Date: 20201103
  Serious: No
  Sender: FDA-Public Use
  Company Number: US-SA-2020SA203037

PATIENT

DRUGS (1)
  1. AUBAGIO [Suspect]
     Active Substance: TERIFLUNOMIDE
     Indication: MULTIPLE SCLEROSIS
     Dosage: 7 MG, QD
     Route: 048
     Dates: start: 20171016

REACTIONS (8)
  - Balance disorder [Unknown]
  - Constipation [Unknown]
  - Musculoskeletal stiffness [Unknown]
  - Sensory disturbance [Unknown]
  - Pain [Unknown]
  - Bladder disorder [Unknown]
  - Functional gastrointestinal disorder [Unknown]
  - Movement disorder [Unknown]
